FAERS Safety Report 11100566 (Version 1)
Quarter: 2015Q2

REPORT INFORMATION
  Report Type: Spontaneous
  Country: US (occurrence: US)
  Receive Date: 20150508
  Receipt Date: 20150508
  Transmission Date: 20150821
  Serious: Yes (Other)
  Sender: FDA-Public Use
  Company Number: US-BAYER-2015-203249

PATIENT
  Age: 71 Year
  Sex: Female
  Weight: 68 kg

DRUGS (4)
  1. VITAMIN D [COLECALCIFEROL] [Concomitant]
  2. ALEVE [Suspect]
     Active Substance: NAPROXEN SODIUM
     Indication: PAIN
     Dosage: DOSE: 1-2 DF, DEPENDING ON THE SEVERITY OF PAIN, PRN
     Route: 048
     Dates: start: 2015, end: 20150428
  3. CENTRUM SILVER [Concomitant]
     Active Substance: VITAMINS
  4. CALCIUM [CALCIUM] [Concomitant]
     Active Substance: CALCIUM

REACTIONS (1)
  - Intestinal haemorrhage [Unknown]

NARRATIVE: CASE EVENT DATE: 20150428
